FAERS Safety Report 23503587 (Version 1)
Quarter: 2024Q1

REPORT INFORMATION
  Report Type: Spontaneous
  Country: US (occurrence: None)
  Receive Date: 20240208
  Receipt Date: 20240208
  Transmission Date: 20240410
  Serious: Yes (Other)
  Sender: FDA-Public Use
  Company Number: None

PATIENT
  Age: 41 Year
  Sex: Female

DRUGS (1)
  1. BENLYSTA [Suspect]
     Active Substance: BELIMUMAB
     Indication: Systemic lupus erythematosus
     Dosage: OTHER QUANTITY : 200MG (1 PEN);?
     Route: 058
     Dates: start: 20240128

REACTIONS (3)
  - Product storage error [None]
  - Injection site pain [None]
  - Injection site pain [None]

NARRATIVE: CASE EVENT DATE: 20240204
